FAERS Safety Report 6338242-0 (Version None)
Quarter: 2009Q3

REPORT INFORMATION
  Report Type: 
  Country: None (occurrence: None)
  Receive Date: 20090902
  Receipt Date: 20090828
  Transmission Date: 20100115
  Serious: Yes (Death)
  Sender: FDA-Public Use
  Company Number: JP-SANOFI-SYNTHELABO-F01200900839

PATIENT
  Sex: Male
  Weight: 65 kg

DRUGS (7)
  1. BLOPRESS [Concomitant]
     Dosage: 8 MG
     Route: 048
     Dates: end: 20090325
  2. AMLODIPINE [Concomitant]
     Dosage: 5 MG
     Route: 048
     Dates: end: 20090325
  3. ASPIRIN [Concomitant]
     Indication: ACUTE MYOCARDIAL INFARCTION
     Dosage: 100 MG
     Route: 048
     Dates: start: 20090307, end: 20090325
  4. CLOPIDOGREL [Suspect]
     Indication: ACUTE CORONARY SYNDROME
     Dosage: STARTING DOSE 300 MG
     Route: 048
     Dates: start: 20090306, end: 20090306
  5. CLOPIDOGREL [Suspect]
     Indication: ACUTE MYOCARDIAL INFARCTION
     Dosage: STARTING DOSE 300 MG
     Route: 048
     Dates: start: 20090306, end: 20090306
  6. CLOPIDOGREL [Suspect]
     Dosage: MAINTENANCE DOSE
     Route: 048
     Dates: start: 20090307, end: 20090325
  7. CLOPIDOGREL [Suspect]
     Dosage: MAINTENANCE DOSE
     Route: 048
     Dates: start: 20090307, end: 20090325

REACTIONS (2)
  - BRAIN CONTUSION [None]
  - TRAUMATIC HAEMORRHAGE [None]
